FAERS Safety Report 7010686-3 (Version None)
Quarter: 2010Q3

REPORT INFORMATION
  Report Type: 
  Country: None (occurrence: None)
  Receive Date: 20100923
  Receipt Date: 20100913
  Transmission Date: 20110219
  Serious: Yes (Hospitalization, Other)
  Sender: FDA-Public Use
  Company Number: PHEH2007US13872

PATIENT
  Sex: Female

DRUGS (23)
  1. AREDIA [Suspect]
     Indication: BREAST CANCER
     Dosage: UNK
     Dates: start: 19981116, end: 20020301
  2. ZOMETA [Suspect]
     Indication: BREAST CANCER
     Dosage: UNK
     Dates: start: 19980501, end: 20050517
  3. FASLODEX [Concomitant]
  4. ARANESP [Concomitant]
  5. ARIMIDEX [Concomitant]
     Dosage: UNK
     Dates: start: 20020101
  6. COUMADIN [Concomitant]
  7. ADRIAMYCIN PFS [Concomitant]
     Dosage: UNK
     Dates: start: 19971201
  8. TAXOTERE [Concomitant]
     Dosage: UNK
     Dates: start: 19971201
  9. TAMOXIFEN CITRATE [Concomitant]
     Dosage: UNK
     Dates: start: 19971201
  10. ASPIRIN [Concomitant]
     Dosage: UNK
     Dates: start: 19970101
  11. MUCINEX [Concomitant]
     Dosage: UNK
  12. OXYGEN [Concomitant]
  13. SENOKOT                                 /UNK/ [Concomitant]
  14. SYNTHROID [Concomitant]
  15. TRAMADOL HYDROCHLORIDE [Concomitant]
  16. PROTONIX [Concomitant]
  17. CAPECITABINE [Concomitant]
  18. DECADRON [Concomitant]
  19. PEN-VEE K [Concomitant]
     Dosage: UNK
     Route: 048
  20. XELODA [Concomitant]
     Dosage: 500MG - AM/ 300MG -PM
  21. ABRAXANE [Concomitant]
  22. AROMASIN [Concomitant]
  23. LEVOTHYROXINE SODIUM [Concomitant]

REACTIONS (90)
  - ABSCESS [None]
  - ABSCESS JAW [None]
  - ADRENAL MASS [None]
  - ALOPECIA [None]
  - ANAEMIA [None]
  - ANHEDONIA [None]
  - ANXIETY [None]
  - AORTIC VALVE DISEASE [None]
  - ARTHRALGIA [None]
  - ASCITES [None]
  - ASPIRATION PLEURAL CAVITY [None]
  - BLOOD ALKALINE PHOSPHATASE INCREASED [None]
  - BONE DISORDER [None]
  - BONE LESION [None]
  - BONE PAIN [None]
  - BRONCHITIS [None]
  - CARDIAC MURMUR [None]
  - CAROTID ARTERY DISEASE [None]
  - CAROTID BODY TUMOUR [None]
  - CYST [None]
  - CYST DRAINAGE [None]
  - CYST RUPTURE [None]
  - DEBRIDEMENT [None]
  - DECUBITUS ULCER [None]
  - DEFORMITY [None]
  - DIPLOPIA [None]
  - DISCOMFORT [None]
  - DIVERTICULUM INTESTINAL [None]
  - DYSPNOEA [None]
  - EAR PAIN [None]
  - EMOTIONAL DISTRESS [None]
  - ENDOCRINE OPHTHALMOPATHY [None]
  - EYELID OEDEMA [None]
  - FACE OEDEMA [None]
  - FALL [None]
  - FATIGUE [None]
  - GASTROOESOPHAGEAL REFLUX DISEASE [None]
  - HEADACHE [None]
  - HEPATIC STEATOSIS [None]
  - HYPOAESTHESIA FACIAL [None]
  - HYPOPHAGIA [None]
  - INFECTION [None]
  - INTERVERTEBRAL DISC PROTRUSION [None]
  - LIFE EXPECTANCY SHORTENED [None]
  - LUNG NEOPLASM MALIGNANT [None]
  - MALIGNANT NEOPLASM PROGRESSION [None]
  - MALIGNANT PLEURAL EFFUSION [None]
  - METASTASES TO BONE [None]
  - METASTASES TO CENTRAL NERVOUS SYSTEM [None]
  - METASTASES TO LUNG [None]
  - METASTASES TO NASAL SINUSES [None]
  - METASTASES TO SPINE [None]
  - MUSCULAR WEAKNESS [None]
  - MUSCULOSKELETAL DISCOMFORT [None]
  - MUSCULOSKELETAL PAIN [None]
  - OPTIC NEUROPATHY [None]
  - OSTEOARTHRITIS [None]
  - OSTEONECROSIS OF JAW [None]
  - OSTEOSCLEROSIS [None]
  - PAIN [None]
  - PAIN IN JAW [None]
  - PANCREATIC CALCIFICATION [None]
  - PARAESTHESIA [None]
  - PELVIC FRACTURE [None]
  - PLATELET COUNT DECREASED [None]
  - PLEURAL EFFUSION [None]
  - PLEURODESIS [None]
  - PNEUMONIA [None]
  - PNEUMOTHORAX [None]
  - PROTHROMBIN TIME PROLONGED [None]
  - PULMONARY FIBROSIS [None]
  - RIB FRACTURE [None]
  - SCOLIOSIS [None]
  - SLEEP DISORDER [None]
  - SPONDYLOLISTHESIS [None]
  - STOMATITIS NECROTISING [None]
  - SYNCOPE [None]
  - THORACOSTOMY [None]
  - THROMBOPHLEBITIS [None]
  - THROMBOSIS [None]
  - TOTAL LUNG CAPACITY DECREASED [None]
  - TRANSFUSION [None]
  - UTERINE LEIOMYOMA [None]
  - VAGINAL HAEMORRHAGE [None]
  - VENOUS INSUFFICIENCY [None]
  - VENOUS OCCLUSION [None]
  - VIITH NERVE PARALYSIS [None]
  - VISION BLURRED [None]
  - WEIGHT DECREASED [None]
  - WHEELCHAIR USER [None]
